FAERS Safety Report 8304078-4 (Version None)
Quarter: 2012Q1

REPORT INFORMATION
  Report Type: 
  Country: None (occurrence: None)
  Receive Date: 20120326
  Receipt Date: 20110728
  Transmission Date: 20120608
  Serious: Yes (Other)
  Sender: FDA-Public Use
  Company Number: PHHY2011US24024

PATIENT
  Age: 60 Year
  Sex: Female

DRUGS (8)
  1. TASIGNA [Suspect]
     Indication: SYSTEMIC MASTOCYTOSIS
     Dosage: 400 MG, BID
     Dates: start: 20071228, end: 20080115
  2. ZOMETA [Suspect]
  3. TRILISATE (CHOLINE SALICYLATE, MAGNESIUM SALICYLATE) [Suspect]
     Indication: PAIN
     Dosage: 750 MG, BID, ORAL
     Route: 048
  4. AMBIEN CR [Concomitant]
  5. ZANTAC [Concomitant]
  6. LIPITOR [Suspect]
     Indication: HYPERCHOLESTEROLAEMIA
     Dosage: 10 MG, QHS
     Dates: end: 20080125
  7. SPRYCEL [Suspect]
     Dosage: 50 MG, DAILY, ORAL
     Route: 048
     Dates: end: 20110302
  8. LEVOTHYROXINE SODIUM [Concomitant]

REACTIONS (7)
  - NAUSEA [None]
  - CONDITION AGGRAVATED [None]
  - PRURITUS [None]
  - LIVER FUNCTION TEST ABNORMAL [None]
  - ANXIETY [None]
  - DEPRESSED MOOD [None]
  - DYSPNOEA [None]
